FAERS Safety Report 9490846 (Version 1)
Quarter: 2013Q3

REPORT INFORMATION
  Report Type: Spontaneous
  Country: US (occurrence: None)
  Receive Date: 20130828
  Receipt Date: 20130828
  Transmission Date: 20140515
  Serious: No
  Sender: FDA-Public Use
  Company Number: None

PATIENT
  Age: 55 Year
  Sex: Female
  Weight: 83.92 kg

DRUGS (10)
  1. TOPIRAMATE [Suspect]
     Indication: MIGRAINE PROPHYLAXIS
     Dosage: STRENGTH: 100 MG   2 PILLS  TWICE DAILY  MUTH?
     Route: 048
     Dates: start: 201305, end: 20130719
  2. ZOLOFT [Concomitant]
  3. IMITREX [Concomitant]
  4. VICODIN [Concomitant]
  5. BIOTIN [Concomitant]
  6. LIPOFLAVONOID [Concomitant]
  7. FISH OIL [Concomitant]
  8. B-6 [Concomitant]
  9. MULTIVITAMIN [Concomitant]
  10. CALTRATE D-3 [Concomitant]

REACTIONS (9)
  - Migraine [None]
  - Drug ineffective [None]
  - Malaise [None]
  - Vomiting [None]
  - Stress [None]
  - Herpes zoster [None]
  - Weight increased [None]
  - Product quality issue [None]
  - Product substitution issue [None]
